FAERS Safety Report 10720263 (Version 2)
Quarter: 2015Q1

REPORT INFORMATION
  Report Type: Report from Study
  Country: CA (occurrence: CA)
  Receive Date: 20150119
  Receipt Date: 20150120
  Transmission Date: 20150721
  Serious: Yes (Other)
  Sender: FDA-Public Use
  Company Number: CA-JNJFOC-20150107589

PATIENT
  Sex: Male
  Weight: 56.7 kg

DRUGS (1)
  1. REMICADE [Suspect]
     Active Substance: INFLIXIMAB
     Indication: CROHN^S DISEASE
     Dosage: THERAPY DURATION WAS APPROXIMATELY 2 YEARS
     Route: 042
     Dates: start: 201201, end: 201401

REACTIONS (2)
  - Drug ineffective [Unknown]
  - Crohn^s disease [Unknown]
